FAERS Safety Report 10289649 (Version 1)
Quarter: 2014Q3

REPORT INFORMATION
  Report Type: Spontaneous
  Country: US (occurrence: None)
  Receive Date: 20140707
  Receipt Date: 20140707
  Transmission Date: 20150326
  Serious: Yes (Other)
  Sender: FDA-Public Use
  Company Number: None

PATIENT
  Age: 45 Year
  Sex: Female
  Weight: 70.31 kg

DRUGS (1)
  1. NYSTATIN/TRIAMCINOLONE [Suspect]
     Active Substance: NYSTATIN\TRIAMCINOLONE
     Indication: VULVOVAGINAL PRURITUS
     Dosage: RX 7332708, AS NEEDED, EXTERNAL LABIA
     Route: 061
     Dates: start: 20140701, end: 20130703

REACTIONS (3)
  - Dizziness [None]
  - Nausea [None]
  - Mental impairment [None]

NARRATIVE: CASE EVENT DATE: 20140703
